FAERS Safety Report 18778288 (Version 1)
Quarter: 2021Q1

REPORT INFORMATION
  Report Type: Spontaneous
  Country: US (occurrence: US)
  Receive Date: 20210123
  Receipt Date: 20210123
  Transmission Date: 20210419
  Serious: No
  Sender: FDA-Public Use
  Company Number: US-JNJFOC-20191204725

PATIENT
  Age: 59 Year
  Sex: Female
  Weight: 56.75 kg

DRUGS (1)
  1. IMODIUM A?D [Suspect]
     Active Substance: LOPERAMIDE HYDROCHLORIDE
     Indication: DIARRHOEA
     Dosage: 60?30ML 60ML AT SUNDAY, 30ML AT MONDAY AND TODAY
     Route: 048
     Dates: start: 20191201, end: 20191203

REACTIONS (1)
  - Drug ineffective [Unknown]
